FAERS Safety Report 6888615-2 (Version None)
Quarter: 2010Q3

REPORT INFORMATION
  Report Type: 
  Country: None (occurrence: None)
  Receive Date: 20100730
  Receipt Date: 20070930
  Transmission Date: 20110219
  Serious: No
  Sender: FDA-Public Use
  Company Number: US-PFIZER INC-2007081990

PATIENT
  Sex: Female
  Weight: 50 kg

DRUGS (4)
  1. LIPITOR [Suspect]
     Indication: BLOOD CHOLESTEROL INCREASED
     Route: 048
     Dates: start: 20070927
  2. COREX [Concomitant]
  3. ACETYLSALICYLIC ACID SRT [Concomitant]
  4. DRUG USED IN DIABETES [Concomitant]

REACTIONS (1)
  - MYALGIA [None]
